FAERS Safety Report 8176426-X (Version None)
Quarter: 2012Q1

REPORT INFORMATION
  Report Type: 
  Country: None (occurrence: None)
  Receive Date: 20120301
  Receipt Date: 20120229
  Transmission Date: 20120608
  Serious: Yes (Hospitalization)
  Sender: FDA-Public Use
  Company Number: CH-ASTRAZENECA-2010SE05676

PATIENT
  Sex: Male
  Weight: 104 kg

DRUGS (13)
  1. OMEPRAZOLE [Concomitant]
     Dosage: 20 DAILY
  2. TASMADERM [Concomitant]
  3. FLUTICASONE PROPIONATE/SALMETEROL [Concomitant]
  4. PREDNISOLONE [Concomitant]
     Dosage: 5 DAILY
  5. IMODIUM [Concomitant]
  6. CLINDAMYCIN HCL [Concomitant]
  7. VANDETANIB [Suspect]
     Indication: THYROID CANCER
     Route: 048
     Dates: end: 20100206
  8. ATENOLOL [Concomitant]
     Dosage: 50  DAILY
  9. SPIRIVA [Concomitant]
  10. BAYPRESS MITE [Concomitant]
     Dosage: 50 DAILY
  11. ECOMUCYL [Concomitant]
  12. ALLOPRIN [Concomitant]
     Dosage: 300 DAILY
  13. LEVOTHYROXINE SODIUM [Concomitant]

REACTIONS (1)
  - GALLBLADDER PERFORATION [None]
